FAERS Safety Report 20454821 (Version 1)
Quarter: 2022Q1

REPORT INFORMATION
  Report Type: Spontaneous
  Country: FR (occurrence: FR)
  Receive Date: 20220210
  Receipt Date: 20220210
  Transmission Date: 20220423
  Serious: Yes (Other)
  Sender: FDA-Public Use
  Company Number: None

PATIENT
  Age: 17 Year
  Sex: Male

DRUGS (2)
  1. ALPRAZOLAM [Suspect]
     Active Substance: ALPRAZOLAM
     Dosage: UNK
  2. ZOPICLONE [Suspect]
     Active Substance: ZOPICLONE
     Dosage: 15 MG, SINGLE (2 TABLETS OF 7.5 MG IN 3 HOURS)
     Route: 048

REACTIONS (2)
  - Poisoning deliberate [Recovered/Resolved]
  - Intentional product misuse [Recovered/Resolved]

NARRATIVE: CASE EVENT DATE: 20220116
